FAERS Safety Report 12264708 (Version 1)
Quarter: 2016Q2

REPORT INFORMATION
  Report Type: Spontaneous
  Country: GB (occurrence: GB)
  Receive Date: 20160413
  Receipt Date: 20160413
  Transmission Date: 20160815
  Serious: Yes (Other)
  Sender: FDA-Public Use
  Company Number: GB-BAYER-2016-063030

PATIENT
  Age: 42 Year
  Sex: Male
  Weight: 60 kg

DRUGS (1)
  1. AVELOX [Suspect]
     Active Substance: MOXIFLOXACIN HYDROCHLORIDE
     Indication: SINUSITIS BACTERIAL
     Dosage: 400 MG, UNK
     Route: 048
     Dates: start: 20160201, end: 20160207

REACTIONS (7)
  - Hypopyon [Recovering/Resolving]
  - Photophobia [Recovering/Resolving]
  - Vision blurred [Recovering/Resolving]
  - Iridocyclitis [Recovering/Resolving]
  - Anterior chamber cell [Recovering/Resolving]
  - Eye pain [Recovering/Resolving]
  - Ciliary hyperaemia [Recovering/Resolving]

NARRATIVE: CASE EVENT DATE: 20160204
